FAERS Safety Report 8205104-3 (Version None)
Quarter: 2012Q1

REPORT INFORMATION
  Report Type: 
  Country: None (occurrence: None)
  Receive Date: 20120313
  Receipt Date: 20101115
  Transmission Date: 20120608
  Serious: Yes (Hospitalization)
  Sender: FDA-Public Use
  Company Number: US-GLAXOSMITHKLINE-A0894202A

PATIENT
  Sex: Male
  Weight: 82.3 kg

DRUGS (6)
  1. SOMA [Concomitant]
  2. AVANDIA [Suspect]
     Indication: DIABETES MELLITUS
     Dosage: 8MG PER DAY
     Route: 048
     Dates: start: 20001023, end: 20070829
  3. OXYCONTIN [Concomitant]
  4. PRILOSEC [Concomitant]
  5. VICODIN [Concomitant]
  6. INSULIN [Concomitant]

REACTIONS (3)
  - CAROTID ARTERY STENOSIS [None]
  - CARDIOVASCULAR DISORDER [None]
  - CEREBROVASCULAR ACCIDENT [None]
